FAERS Safety Report 25015325 (Version 1)
Quarter: 2025Q1

REPORT INFORMATION
  Report Type: Spontaneous
  Country: US (occurrence: US)
  Receive Date: 20250226
  Receipt Date: 20250226
  Transmission Date: 20250409
  Serious: Yes (Hospitalization, Other)
  Sender: JOHNSON AND JOHNSON
  Company Number: US-JNJFOC-20250260389

PATIENT
  Age: 69 Year
  Sex: Female
  Weight: 63.5 kg

DRUGS (21)
  1. OPSUMIT [Suspect]
     Active Substance: MACITENTAN
     Indication: Product used for unknown indication
     Route: 048
  2. REMODULIN [Suspect]
     Active Substance: TREPROSTINIL
     Indication: Pulmonary arterial hypertension
     Route: 058
     Dates: start: 20231122
  3. FAMOTIDINE [Concomitant]
     Active Substance: FAMOTIDINE
  4. CALCIUM CITRATE\CHOLECALCIFEROL [Concomitant]
     Active Substance: CALCIUM CITRATE\CHOLECALCIFEROL
  5. BACTRIM DS [Concomitant]
     Active Substance: SULFAMETHOXAZOLE\TRIMETHOPRIM
  6. PROTONIX [Concomitant]
     Active Substance: PANTOPRAZOLE SODIUM
  7. VITAMIN D3 [Concomitant]
     Active Substance: CHOLECALCIFEROL
  8. KETAMINE HYDROCHLORIDE [Concomitant]
     Active Substance: KETAMINE HYDROCHLORIDE
  9. LECITHIN [Concomitant]
     Active Substance: LECITHIN
  10. ALBUTEROL SULFATE [Concomitant]
     Active Substance: ALBUTEROL SULFATE
  11. TUDORZA PRESSAIR [Concomitant]
     Active Substance: ACLIDINIUM BROMIDE
  12. CLONIDINE [Concomitant]
     Active Substance: CLONIDINE
  13. KETOPROFEN [Concomitant]
     Active Substance: KETOPROFEN
  14. PREDNISONE [Concomitant]
     Active Substance: PREDNISONE
  15. SPIRONOLACTONE [Concomitant]
     Active Substance: SPIRONOLACTONE
  16. OXYGEN [Concomitant]
     Active Substance: OXYGEN
  17. LIDOCAINE HYDROCHLORIDE [Concomitant]
     Active Substance: LIDOCAINE HYDROCHLORIDE
  18. OMEPRAZOLE [Concomitant]
     Active Substance: OMEPRAZOLE
  19. AMITRIPTYLINE HYDROCHLORIDE [Concomitant]
     Active Substance: AMITRIPTYLINE HYDROCHLORIDE
  20. GABAPENTIN [Concomitant]
     Active Substance: GABAPENTIN
  21. POLOXAMER [Concomitant]
     Active Substance: POLOXAMER

REACTIONS (11)
  - Rectal haemorrhage [Unknown]
  - Influenza [Unknown]
  - Device occlusion [Unknown]
  - Device leakage [Unknown]
  - Weight decreased [Unknown]
  - Infusion site erythema [Unknown]
  - Depression [Unknown]
  - Nausea [Unknown]
  - Decreased appetite [Unknown]
  - Treatment noncompliance [Unknown]
  - Device use error [Unknown]

NARRATIVE: CASE EVENT DATE: 20250101
